FAERS Safety Report 6439969-2 (Version None)
Quarter: 2009Q4

REPORT INFORMATION
  Report Type: 
  Country: None (occurrence: None)
  Receive Date: 20091113
  Receipt Date: 20091104
  Transmission Date: 20100525
  Serious: Yes (Other)
  Sender: FDA-Public Use
  Company Number: US-JNJFOC-20091103478

PATIENT
  Age: 56 Year
  Sex: Female
  Weight: 74.39 kg

DRUGS (1)
  1. SUDAFED PE TRIPLE ACTION [Suspect]
     Indication: SINUS DISORDER

REACTIONS (2)
  - BLOOD PRESSURE INCREASED [None]
  - VISION BLURRED [None]
